FAERS Safety Report 24059148 (Version 1)
Quarter: 2024Q3

REPORT INFORMATION
  Report Type: Spontaneous
  Country: NL (occurrence: NL)
  Receive Date: 20240708
  Receipt Date: 20240708
  Transmission Date: 20241017
  Serious: Yes (Hospitalization)
  Sender: CELLTRION
  Company Number: NL-CELLTRION INC.-2024NL016002

PATIENT

DRUGS (2)
  1. RITUXIMAB [Suspect]
     Active Substance: RITUXIMAB
     Indication: Ovarian cancer
     Dosage: 10 MG/ML (MILLIGRAM PER MILLILITER)
     Dates: start: 20221121, end: 20221219
  2. FUROSEMIDE [Suspect]
     Active Substance: FUROSEMIDE
     Indication: Product used for unknown indication
     Dosage: 40 MG, EVERY 1 DAY (1DD)
     Dates: start: 20221226

REACTIONS (2)
  - Hyponatraemia [Not Recovered/Not Resolved]
  - Intentional product use issue [Unknown]
